FAERS Safety Report 5724964-9 (Version None)
Quarter: 2008Q2

REPORT INFORMATION
  Report Type: 
  Country: None (occurrence: None)
  Receive Date: 20080429
  Receipt Date: 20080417
  Transmission Date: 20081010
  Serious: Yes (Death, Hospitalization)
  Sender: FDA-Public Use
  Company Number: 2008-00726

PATIENT
  Age: 79 Year
  Sex: Male

DRUGS (5)
  1. VELCADE [Suspect]
     Indication: MULTIPLE MYELOMA
     Dosage: 1.3 MG/M2, INTRAVENOUS
     Route: 042
     Dates: start: 20070925, end: 20080218
  2. CADEX (DOXAZOSIN MESILATE) [Concomitant]
  3. OXYCOD (OXYCODONE HYDROCHLORIDE) [Concomitant]
  4. EPREX [Concomitant]
  5. DURAGESIC [Concomitant]

REACTIONS (3)
  - DISEASE PROGRESSION [None]
  - MULTIPLE MYELOMA [None]
  - PNEUMONIA [None]
